FAERS Safety Report 19487189 (Version 1)
Quarter: 2021Q3

REPORT INFORMATION
  Report Type: Spontaneous
  Country: US (occurrence: US)
  Receive Date: 20210702
  Receipt Date: 20210702
  Transmission Date: 20211014
  Serious: Yes (Other)
  Sender: FDA-Public Use
  Company Number: US-CUMBERLAND-2021-US-000020

PATIENT
  Age: 33 Year
  Sex: Female

DRUGS (2)
  1. ACETADOTE [Suspect]
     Active Substance: ACETYLCYSTEINE
  2. FOMEPIZOLE. [Suspect]
     Active Substance: FOMEPIZOLE

REACTIONS (1)
  - Drug ineffective [Unknown]
